FAERS Safety Report 4850635-7 (Version None)
Quarter: 2005Q4

REPORT INFORMATION
  Report Type: 
  Country: None (occurrence: None)
  Receive Date: 20051208
  Receipt Date: 20051128
  Transmission Date: 20060501
  Serious: Yes (Hospitalization)
  Sender: FDA-Public Use
  Company Number: A-JP2005-11160

PATIENT
  Age: 17 Year
  Sex: Female

DRUGS (5)
  1. TRACLEER [Suspect]
     Indication: PULMONARY HYPERTENSION
     Dosage: SEE IMAGE
     Dates: start: 20050811, end: 20050910
  2. TRACLEER [Suspect]
     Indication: PULMONARY HYPERTENSION
     Dosage: SEE IMAGE
     Dates: start: 20050911, end: 20051108
  3. TRACLEER [Suspect]
     Indication: PULMONARY HYPERTENSION
     Dosage: SEE IMAGE
     Dates: start: 20051109, end: 20051116
  4. EPOPROSTENOL SODIUM (EPOPROSTENOL SODIUM) [Concomitant]
  5. SILDENAFIL CITRATE (SILDENAFIL CITRATE) [Concomitant]

REACTIONS (1)
  - DIARRHOEA [None]
